FAERS Safety Report 23253259 (Version 1)
Quarter: 2023Q4

REPORT INFORMATION
  Report Type: Report from Study
  Country: FR (occurrence: FR)
  Receive Date: 20231202
  Receipt Date: 20231202
  Transmission Date: 20240110
  Serious: Yes (Hospitalization, Other)
  Sender: FDA-Public Use
  Company Number: FR-CELLTRION INC.-2023FR022981

PATIENT

DRUGS (7)
  1. RITUXIMAB [Suspect]
     Active Substance: RITUXIMAB
     Indication: Diffuse large B-cell lymphoma
     Dosage: 671 MG LAST DOSE PRIOR TO AE ON 06 OCT 2023, EVERY 3 WEEKS, ONGOING
     Route: 042
     Dates: start: 20230914
  2. EPCORITAMAB [Suspect]
     Active Substance: EPCORITAMAB
     Indication: Diffuse large B-cell lymphoma
     Dosage: 0.16 MG PRIMING DOSE; C1, D1, TOTAL
     Route: 058
     Dates: start: 20230914, end: 20230914
  3. EPCORITAMAB [Suspect]
     Active Substance: EPCORITAMAB
     Dosage: 0.16 MG RE-PRIMING DOSE, TOTAL
     Route: 058
     Dates: start: 20231006, end: 20231006
  4. DOXORUBICIN [Suspect]
     Active Substance: DOXORUBICIN
     Indication: Diffuse large B-cell lymphoma
     Dosage: 89.6 MG LAST DOSE PRIOR TO AE ON 06 OCT 2023, EVERY 3 WEEKS, ONGOING
     Route: 042
     Dates: start: 20230914
  5. VINCRISTINE [Suspect]
     Active Substance: VINCRISTINE
     Indication: Diffuse large B-cell lymphoma
     Dosage: 2 MG LAST DOSE PRIOR TO AE ON 06 OCT 2023, EVERY 3 WEEKS, ONGOING
     Route: 042
     Dates: start: 20230914
  6. PREDNISONE [Suspect]
     Active Substance: PREDNISONE
     Indication: Diffuse large B-cell lymphoma
     Dosage: 100 MG, EVERY 1 DAYS, ONGOING
     Route: 048
     Dates: start: 20230914
  7. CYCLOPHOSPHAMIDE [Suspect]
     Active Substance: CYCLOPHOSPHAMIDE
     Indication: Diffuse large B-cell lymphoma
     Dosage: 1342 MG LAST DOSE PRIOR TO AE ON 06 OCT 2023, EVERY 3 WEEKS, ONGOING
     Route: 042
     Dates: start: 20230914

REACTIONS (1)
  - Cytokine release syndrome [Not Recovered/Not Resolved]

NARRATIVE: CASE EVENT DATE: 20231020
